FAERS Safety Report 7817143-2 (Version None)
Quarter: 2011Q4

REPORT INFORMATION
  Report Type: 
  Country: None (occurrence: None)
  Receive Date: 20111017
  Receipt Date: 20111017
  Transmission Date: 20120403
  Serious: Yes (Other)
  Sender: FDA-Public Use
  Company Number: None

PATIENT
  Sex: Male

DRUGS (1)
  1. SEROQUEL [Suspect]
     Indication: MOOD ALTERED
     Dosage: 200MG
     Route: 048
     Dates: start: 20080601, end: 20090501

REACTIONS (5)
  - GAIT DISTURBANCE [None]
  - FEELING ABNORMAL [None]
  - URINARY RETENTION [None]
  - INCORRECT DOSE ADMINISTERED [None]
  - LETHARGY [None]
